FAERS Safety Report 16579585 (Version 1)
Quarter: 2019Q3

REPORT INFORMATION
  Report Type: Spontaneous
  Country: GB (occurrence: GB)
  Receive Date: 20190716
  Receipt Date: 20190716
  Transmission Date: 20191004
  Serious: Yes (Hospitalization)
  Sender: FDA-Public Use
  Company Number: GB-JNJFOC-20190715150

PATIENT
  Age: 46 Year
  Sex: Female
  Weight: 53 kg

DRUGS (4)
  1. TRAMADOL HYDROCHLORIDE. [Suspect]
     Active Substance: TRAMADOL HYDROCHLORIDE
     Indication: FRACTURE PAIN
     Dosage: 100 MG, UNK
     Route: 048
     Dates: start: 2018, end: 20190515
  2. LEVOTHYROXINE. [Concomitant]
     Active Substance: LEVOTHYROXINE
     Indication: PRODUCT USED FOR UNKNOWN INDICATION
     Dosage: UNK
     Route: 065
  3. CALCIUM + VITAMIN D [Concomitant]
     Active Substance: CALCIUM\VITAMIN D
     Indication: PRODUCT USED FOR UNKNOWN INDICATION
     Dosage: UNK
     Route: 065
  4. BUTRANS [Suspect]
     Active Substance: BUPRENORPHINE
     Indication: PRODUCT USED FOR UNKNOWN INDICATION
     Dosage: UNK
     Route: 062

REACTIONS (6)
  - Paraesthesia [Unknown]
  - Hyperreflexia [Recovered/Resolved with Sequelae]
  - Epilepsy [Recovered/Resolved with Sequelae]
  - Hypoaesthesia [Unknown]
  - Migraine [Unknown]
  - Myoclonus [Recovered/Resolved with Sequelae]

NARRATIVE: CASE EVENT DATE: 20190512
